FAERS Safety Report 8423491-8 (Version None)
Quarter: 2012Q2

REPORT INFORMATION
  Report Type: 
  Country: None (occurrence: None)
  Receive Date: 20120608
  Receipt Date: 20120601
  Transmission Date: 20120825
  Serious: Yes (Hospitalization, Other)
  Sender: FDA-Public Use
  Company Number: US-ABBOTT-12P-163-0942090-00

PATIENT
  Age: 59 Year
  Sex: Female

DRUGS (7)
  1. CYMBALTA [Concomitant]
     Indication: DEPRESSION
  2. METOPROLOL [Concomitant]
     Indication: PRODUCT USED FOR UNKNOWN INDICATION
     Dosage: 100 MG (4) TABLETS DAILY
  3. METFORMIN HYDROCHLORIDE [Concomitant]
     Indication: PRODUCT USED FOR UNKNOWN INDICATION
     Dosage: 2000 MG DAILY
  4. CYMBALTA [Concomitant]
     Indication: NEUROPATHY PERIPHERAL
  5. HUMIRA [Suspect]
     Indication: RHEUMATOID ARTHRITIS
     Dates: start: 20070101, end: 20100101
  6. CRESTOR [Concomitant]
     Indication: PRODUCT USED FOR UNKNOWN INDICATION
  7. WARFARIN SODIUM [Concomitant]
     Indication: PRODUCT USED FOR UNKNOWN INDICATION
     Dosage: 2-5MG DAILY (BASED ON WEEKLY BLOOD WORK)

REACTIONS (9)
  - CARDIAC FAILURE [None]
  - MYOCARDIAL INFARCTION [None]
  - CONDITION AGGRAVATED [None]
  - DEVICE MALFUNCTION [None]
  - SKIN EXFOLIATION [None]
  - RHEUMATOID ARTHRITIS [None]
  - CONNECTIVE TISSUE DISORDER [None]
  - DRY EYE [None]
  - EYELID OEDEMA [None]
